FAERS Safety Report 9744796 (Version 3)
Quarter: 2013Q4

REPORT INFORMATION
  Report Type: Report from Study
  Country: CA (occurrence: CA)
  Receive Date: 20131210
  Receipt Date: 20131224
  Transmission Date: 20140711
  Serious: Yes (Death, Other)
  Sender: FDA-Public Use
  Company Number: CA-ROCHE-1311637

PATIENT
  Age: 55 Year
  Sex: Female
  Weight: 59 kg

DRUGS (9)
  1. HERCEPTIN [Suspect]
     Indication: BREAST CANCER METASTATIC
     Route: 042
  2. PERJETA [Suspect]
     Indication: BREAST CANCER METASTATIC
     Route: 042
     Dates: start: 20131128
  3. TYKERB [Concomitant]
     Route: 048
     Dates: start: 201309
  4. ZANTAC [Concomitant]
     Route: 048
  5. LYRICA [Concomitant]
     Route: 048
     Dates: start: 201307
  6. PANTOLOC [Concomitant]
     Route: 048
     Dates: start: 201311
  7. GRAVOL [Concomitant]
     Route: 048
  8. ADVAIR [Concomitant]
     Route: 055
  9. DEXAMETHASONE [Concomitant]
     Route: 048
     Dates: start: 201311

REACTIONS (7)
  - Death [Fatal]
  - Gait disturbance [Unknown]
  - Dyspnoea [Unknown]
  - White blood cell count increased [Unknown]
  - Asthenia [Unknown]
  - Metastases to lung [Not Recovered/Not Resolved]
  - Nausea [Unknown]
